FAERS Safety Report 9709928 (Version 3)
Quarter: 2014Q1

REPORT INFORMATION
  Report Type: Spontaneous
  Country: US (occurrence: US)
  Receive Date: 20131126
  Receipt Date: 20140331
  Transmission Date: 20141002
  Serious: Yes (Other)
  Sender: FDA-Public Use
  Company Number: US-PFIZER INC-2013334348

PATIENT
  Age: 57 Year
  Sex: Male

DRUGS (5)
  1. INLYTA [Suspect]
     Indication: RENAL CELL CARCINOMA
     Dosage: 5 MG TABLET (2 TABLETS EVERY 12 HOURS)
     Dates: end: 20131114
  2. INLYTA [Suspect]
     Dosage: 5 MG, EVERY 12 HOURS (EVERY 28 DAYS)
     Route: 048
     Dates: start: 20130416, end: 20131002
  3. OXYCODONE [Concomitant]
     Indication: PAIN
     Dosage: DAILY
     Dates: start: 2008
  4. OXYCONTIN [Concomitant]
     Indication: PAIN
     Dosage: DAILY
     Dates: start: 2008
  5. GABAPENTIN [Concomitant]
     Dosage: DAILY

REACTIONS (4)
  - Diarrhoea [Recovered/Resolved]
  - Disease progression [Unknown]
  - Renal cell carcinoma [Unknown]
  - Gastrointestinal disorder [Unknown]
